FAERS Safety Report 17982368 (Version 1)
Quarter: 2020Q3

REPORT INFORMATION
  Report Type: Spontaneous
  Country: US (occurrence: US)
  Receive Date: 20200706
  Receipt Date: 20200706
  Transmission Date: 20201103
  Serious: No
  Sender: FDA-Public Use
  Company Number: US-BAYER-2020-134642

PATIENT
  Age: 62 Year
  Sex: Female

DRUGS (1)
  1. CLARITIN [Suspect]
     Active Substance: LORATADINE
     Dosage: 1 DF
     Route: 048

REACTIONS (3)
  - Blood pressure increased [Recovered/Resolved]
  - Abdominal discomfort [Recovered/Resolved]
  - Illness [Recovered/Resolved]
